FAERS Safety Report 5910751-5 (Version None)
Quarter: 2008Q4

REPORT INFORMATION
  Report Type: 
  Country: None (occurrence: None)
  Receive Date: 20081007
  Receipt Date: 20080411
  Transmission Date: 20090506
  Serious: Yes (Other)
  Sender: FDA-Public Use
  Company Number: US-ASTRAZENECA-2008UW07522

PATIENT
  Age: 67 Year
  Sex: Female
  Weight: 86.2 kg

DRUGS (9)
  1. ARIMIDEX [Suspect]
     Indication: BREAST CANCER STAGE III
     Route: 048
     Dates: start: 20080201
  2. TAMOXIFEN CITRATE [Suspect]
     Route: 048
     Dates: end: 20080201
  3. AVAPRO [Concomitant]
  4. AMBIEN [Concomitant]
  5. LANTUS [Concomitant]
  6. NOVOLOG [Concomitant]
  7. VERAPAMIL [Concomitant]
  8. NEXIUM [Concomitant]
     Route: 048
  9. METOPROLOL TARTRATE [Concomitant]
     Route: 048

REACTIONS (3)
  - HEADACHE [None]
  - HYPERTENSION [None]
  - OEDEMA PERIPHERAL [None]
